FAERS Safety Report 10182959 (Version 2)
Quarter: 2014Q2

REPORT INFORMATION
  Report Type: Spontaneous
  Country: BR (occurrence: BR)
  Receive Date: 20140520
  Receipt Date: 20140520
  Transmission Date: 20141212
  Serious: Yes (Other)
  Sender: FDA-Public Use
  Company Number: BR-PFIZER INC-2014127936

PATIENT
  Sex: Male

DRUGS (1)
  1. DETRUSITOL LA [Suspect]
     Dosage: 4 MG, UNK

REACTIONS (7)
  - Dementia [Unknown]
  - Gastrointestinal disorder [Not Recovered/Not Resolved]
  - Frequent bowel movements [Not Recovered/Not Resolved]
  - Musculoskeletal chest pain [Unknown]
  - Chest pain [Unknown]
  - Flatulence [Not Recovered/Not Resolved]
  - Abdominal pain [Unknown]
